FAERS Safety Report 4589426-3 (Version None)
Quarter: 2005Q2

REPORT INFORMATION
  Report Type: 
  Country: None (occurrence: None)
  Receive Date: 20050223
  Receipt Date: 20050218
  Transmission Date: 20051028
  Serious: Yes (Death, Hospitalization)
  Sender: FDA-Public Use
  Company Number: 200510605FR

PATIENT
  Age: 29 Year
  Sex: Female

DRUGS (6)
  1. LASILIX [Suspect]
     Route: 048
     Dates: end: 20050122
  2. TRACLEER [Suspect]
     Indication: PULMONARY HYPERTENSION
     Route: 048
     Dates: end: 20050122
  3. PREVISCAN 20 MG [Suspect]
     Route: 048
     Dates: end: 20050122
  4. DIFFU K [Suspect]
     Route: 048
     Dates: end: 20050122
  5. OXYGEN THERAPY [Concomitant]
  6. DEROXAT [Concomitant]
     Route: 048
     Dates: start: 20050116, end: 20050116

REACTIONS (10)
  - ABDOMINAL PAIN UPPER [None]
  - ACUTE PULMONARY OEDEMA [None]
  - CREATININE RENAL CLEARANCE DECREASED [None]
  - DEATH [None]
  - HEPATIC FAILURE [None]
  - HEPATOCELLULAR DAMAGE [None]
  - HYPOXIA [None]
  - ISCHAEMIC HEPATITIS [None]
  - PULMONARY OEDEMA [None]
  - PYREXIA [None]
